FAERS Safety Report 24789017 (Version 1)
Quarter: 2024Q4

REPORT INFORMATION
  Report Type: Spontaneous
  Country: US (occurrence: US)
  Receive Date: 20241230
  Receipt Date: 20241230
  Transmission Date: 20250115
  Serious: Yes (Life-Threatening, Hospitalization, Other)
  Sender: ADARE PHARMACEUTICALS
  Company Number: US-Adare-2024-US-000116

PATIENT
  Age: 47 Year
  Sex: Male

DRUGS (3)
  1. PROPRANOLOL [Suspect]
     Active Substance: PROPRANOLOL HYDROCHLORIDE
     Indication: Thyrotoxic crisis
  2. METHIMAZOLE [Concomitant]
     Active Substance: METHIMAZOLE
     Indication: Thyrotoxic crisis
  3. HYDROCORTISONE [Concomitant]
     Active Substance: HYDROCORTISONE
     Indication: Thyrotoxic crisis

REACTIONS (1)
  - Cardiac arrest [Recovered/Resolved]
